FAERS Safety Report 4280193-X (Version None)
Quarter: 2004Q1

REPORT INFORMATION
  Report Type: 
  Country: None (occurrence: None)
  Receive Date: 20040128
  Receipt Date: 20040117
  Transmission Date: 20041129
  Serious: Yes (Hospitalization)
  Sender: FDA-Public Use
  Company Number: GB-GLAXOSMITHKLINE-B0320168A

PATIENT
  Sex: Female

DRUGS (3)
  1. SALBUTAMOL [Suspect]
     Route: 055
  2. BECLOMETHASONE DIPROPIONATE [Suspect]
     Route: 055
  3. CANDESARTAN [Suspect]
     Route: 065

REACTIONS (4)
  - ANTEPARTUM HAEMORRHAGE [None]
  - COMPLICATIONS OF MATERNAL EXPOSURE TO THERAPEUTIC DRUGS [None]
  - PREMATURE BABY [None]
  - PREMATURE LABOUR [None]
